FAERS Safety Report 10443908 (Version 1)
Quarter: 2014Q3

REPORT INFORMATION
  Report Type: Spontaneous
  Country: US (occurrence: US)
  Receive Date: 20140910
  Receipt Date: 20140910
  Transmission Date: 20150326
  Serious: No
  Sender: FDA-Public Use
  Company Number: US-TARO-2013P1018865

PATIENT
  Age: 85 Year
  Sex: Male

DRUGS (5)
  1. WARFARIN SODIUM TABLETS USP 1MG [Suspect]
     Active Substance: WARFARIN SODIUM
     Dates: start: 20130804, end: 20130808
  2. WARFARIN SODIUM TABLETS USP 1MG [Suspect]
     Active Substance: WARFARIN SODIUM
     Indication: ATRIAL FIBRILLATION
     Dates: end: 2013
  3. WARFARIN SODIUM TABLETS USP 1MG [Suspect]
     Active Substance: WARFARIN SODIUM
     Dates: start: 20130809, end: 20130818
  4. WARFARIN SODIUM TABLETS USP 1MG [Suspect]
     Active Substance: WARFARIN SODIUM
     Indication: CEREBROVASCULAR ACCIDENT
     Dates: start: 2013, end: 20130803
  5. WARFARIN SODIUM TABLETS USP 1MG [Suspect]
     Active Substance: WARFARIN SODIUM
     Dates: start: 20130819

REACTIONS (2)
  - Eyelid haematoma [Unknown]
  - International normalised ratio fluctuation [Unknown]

NARRATIVE: CASE EVENT DATE: 2013
